FAERS Safety Report 4455493-0 (Version None)
Quarter: 2004Q3

REPORT INFORMATION
  Report Type: 
  Country: None (occurrence: None)
  Receive Date: 20040917
  Receipt Date: 20040908
  Transmission Date: 20050211
  Serious: Yes (Other)
  Sender: FDA-Public Use
  Company Number: US-JNJFOC-20040903837

PATIENT
  Age: 28 Year
  Sex: Female

DRUGS (4)
  1. IBUPROFEN [Suspect]
     Indication: BACK PAIN
     Dosage: 1600 MG, 1 IN 1 TOTAL
     Dates: start: 20020301, end: 20020301
  2. IBUPROFEN [Suspect]
     Indication: MALAISE
     Dosage: 1600 MG, 1 IN 1 TOTAL
     Dates: start: 20020301, end: 20020301
  3. EXTRA STRENGTH TYLENOL [Suspect]
     Indication: BACK PAIN
     Dosage: 1000 MG, 1 IN 1 TOTAL
     Dates: start: 20020301
  4. EXTRA STRENGTH TYLENOL [Suspect]
     Indication: MALAISE
     Dosage: 1000 MG, 1 IN 1 TOTAL
     Dates: start: 20020301

REACTIONS (5)
  - ABDOMINAL PAIN UPPER [None]
  - DEHYDRATION [None]
  - DRUG INEFFECTIVE [None]
  - NAUSEA [None]
  - STOMACH DISCOMFORT [None]
